FAERS Safety Report 25119793 (Version 3)
Quarter: 2025Q2

REPORT INFORMATION
  Report Type: Spontaneous
  Country: US (occurrence: US)
  Receive Date: 20250325
  Receipt Date: 20250409
  Transmission Date: 20250717
  Serious: Yes (Other)
  Sender: ELI LILLY AND CO
  Company Number: US-ELI_LILLY_AND_COMPANY-US202503019131

PATIENT
  Age: 45 Year
  Sex: Female

DRUGS (7)
  1. TALTZ [Suspect]
     Active Substance: IXEKIZUMAB
     Indication: Psoriasis
     Route: 058
  2. TALTZ [Suspect]
     Active Substance: IXEKIZUMAB
     Indication: Psoriasis
     Route: 058
  3. TALTZ [Suspect]
     Active Substance: IXEKIZUMAB
     Indication: Psoriasis
     Route: 058
  4. TALTZ [Suspect]
     Active Substance: IXEKIZUMAB
     Route: 058
  5. TALTZ [Suspect]
     Active Substance: IXEKIZUMAB
     Route: 058
  6. TALTZ [Suspect]
     Active Substance: IXEKIZUMAB
     Route: 058
  7. TALTZ [Suspect]
     Active Substance: IXEKIZUMAB
     Route: 058

REACTIONS (4)
  - Seizure [Unknown]
  - Incorrect dose administered [Unknown]
  - Fall [Unknown]
  - Contusion [Unknown]
